FAERS Safety Report 9154712 (Version 2)
Quarter: 2013Q1

REPORT INFORMATION
  Report Type: Spontaneous
  Country: VE (occurrence: VE)
  Receive Date: 20130311
  Receipt Date: 20130318
  Transmission Date: 20140127
  Serious: Yes (Death, Other)
  Sender: FDA-Public Use
  Company Number: VE-PFIZER INC-2013081690

PATIENT
  Age: 84 Year
  Sex: Male

DRUGS (1)
  1. LIPITOR [Suspect]
     Dosage: 40 MG, 1X/DAY
     Route: 048

REACTIONS (4)
  - Cardiac arrest [Fatal]
  - Renal failure [Not Recovered/Not Resolved]
  - Urinary tract infection [Recovered/Resolved]
  - Skin ulcer [Not Recovered/Not Resolved]
